FAERS Safety Report 5787349-5 (Version None)
Quarter: 2008Q2

REPORT INFORMATION
  Report Type: 
  Country: None (occurrence: None)
  Receive Date: 20080625
  Receipt Date: 20080618
  Transmission Date: 20081010
  Serious: Yes (Hospitalization, Other)
  Sender: FDA-Public Use
  Company Number: CA-ASTRAZENECA-2007UW16355

PATIENT
  Age: 6585 Day
  Sex: Male

DRUGS (3)
  1. CRESTOR [Suspect]
     Indication: HYPERCHOLESTEROLAEMIA
     Route: 048
     Dates: start: 20070112, end: 20070626
  2. MULTIVITAMINS WITH IRON [Concomitant]
     Indication: BLOOD IRON DECREASED
     Dosage: 1 TABLET
     Route: 048
  3. MINOCYCLINE HCL [Concomitant]
     Indication: ACNE
     Route: 048

REACTIONS (1)
  - RASH VESICULAR [None]
